FAERS Safety Report 23764836 (Version 1)
Quarter: 2024Q2

REPORT INFORMATION
  Report Type: Spontaneous
  Country: US (occurrence: US)
  Receive Date: 20240420
  Receipt Date: 20240420
  Transmission Date: 20240716
  Serious: Yes (Hospitalization, Other)
  Sender: FDA-Public Use
  Company Number: US-CPL-004167

PATIENT
  Age: 68 Year
  Sex: Male

DRUGS (4)
  1. BUPROPION [Interacting]
     Active Substance: BUPROPION
     Indication: Depressive symptom
     Dosage: DAILY
     Dates: start: 202308
  2. FLUOXETINE [Interacting]
     Active Substance: FLUOXETINE HYDROCHLORIDE
     Indication: Depressive symptom
     Dates: start: 202308
  3. DEXTROMETHORPHAN [Interacting]
     Active Substance: DEXTROMETHORPHAN
     Indication: Depressive symptom
     Dosage: 45 MG DAILY
     Dates: start: 202308
  4. PRAZOSIN [Concomitant]
     Active Substance: PRAZOSIN
     Indication: Depressive symptom
     Dosage: 5 MG NIGHTLY
     Dates: start: 202308

REACTIONS (3)
  - Serotonin syndrome [Recovering/Resolving]
  - Drug interaction [Unknown]
  - Toxicity to various agents [Unknown]

NARRATIVE: CASE EVENT DATE: 20230801
